FAERS Safety Report 7535446-6 (Version None)
Quarter: 2011Q2

REPORT INFORMATION
  Report Type: 
  Country: None (occurrence: None)
  Receive Date: 20110609
  Receipt Date: 20080603
  Transmission Date: 20111010
  Serious: Yes (Life-Threatening, Hospitalization, Other)
  Sender: FDA-Public Use
  Company Number: PHFR2008IE00788

PATIENT
  Sex: Male

DRUGS (8)
  1. CLOZAPINE [Suspect]
     Indication: SCHIZOPHRENIA
     Dosage: 225 MG,/DAY
     Route: 048
     Dates: start: 19980521
  2. PROPRANOLOL [Concomitant]
     Indication: TACHYCARDIA
     Dosage: 80 MG/DAY
     Route: 048
  3. CHLORPROMAZINE [Concomitant]
     Indication: SCHIZOPHRENIA
     Dosage: 450 MG/DAY
     Route: 048
  4. LAMOTRIGINE [Concomitant]
     Indication: AFFECTIVE DISORDER
     Dosage: 300 MG/DAY
     Route: 048
  5. BISACODYL [Concomitant]
     Indication: CONSTIPATION
     Dosage: 10 MG/DAY
     Route: 048
  6. ZOLPIDEM [Concomitant]
     Indication: SLEEP DISORDER
     Dosage: 20 MG/DAY
     Route: 048
  7. DULOXETINE HYDROCHLORIDE [Concomitant]
     Indication: DEPRESSION
     Dosage: 120 MG/DAY
     Route: 048
  8. PREGABALIN [Concomitant]
     Indication: ANXIETY
     Dosage: 150 MG/DAY
     Route: 048

REACTIONS (8)
  - PNEUMONIA PNEUMOCOCCAL [None]
  - PULMONARY NECROSIS [None]
  - CANDIDIASIS [None]
  - SEPTIC SHOCK [None]
  - PLEURAL EFFUSION [None]
  - WHITE BLOOD CELL COUNT DECREASED [None]
  - MYOPATHY [None]
  - NEUTROPHIL COUNT DECREASED [None]
